FAERS Safety Report 13068952 (Version 1)
Quarter: 2016Q4

REPORT INFORMATION
  Report Type: Spontaneous
  Country: IT (occurrence: IT)
  Receive Date: 20161228
  Receipt Date: 20161228
  Transmission Date: 20170207
  Serious: Yes (Hospitalization)
  Sender: FDA-Public Use
  Company Number: IT-MYLANLABS-2016M1057699

PATIENT

DRUGS (5)
  1. LORAZEPAM. [Concomitant]
     Active Substance: LORAZEPAM
     Indication: ANXIETY
     Dosage: 1 MG, UNK
     Route: 048
     Dates: start: 20160502, end: 20161020
  2. ATENOLOL. [Concomitant]
     Active Substance: ATENOLOL
     Indication: SINUS TACHYCARDIA
     Dosage: 150 MG, UNK
     Route: 048
     Dates: start: 20160502, end: 20161020
  3. DEPAKIN CHRONO /01294701/ [Suspect]
     Active Substance: VALPROIC ACID
     Indication: MOOD DISORDER DUE TO A GENERAL MEDICAL CONDITION
     Dosage: 2000 MG, QD
     Route: 048
     Dates: start: 20160502, end: 20161020
  4. FULCROSUPRA 145 MG, COMPRESSE RIVESTITE CON FILM. [Suspect]
     Active Substance: FENOFIBRATE
     Indication: DYSLIPIDAEMIA
     Dosage: 145 MG, QD
     Route: 048
     Dates: start: 20160919, end: 20161020
  5. CLOZAPINE. [Suspect]
     Active Substance: CLOZAPINE
     Indication: MOOD DISORDER DUE TO A GENERAL MEDICAL CONDITION
     Dosage: 250 MG, QD
     Route: 048
     Dates: start: 20160518, end: 20161020

REACTIONS (2)
  - Pancreatitis acute [Recovered/Resolved with Sequelae]
  - Product use issue [Unknown]

NARRATIVE: CASE EVENT DATE: 20160518
